FAERS Safety Report 7433398-0 (Version None)
Quarter: 2011Q2

REPORT INFORMATION
  Report Type: 
  Country: None (occurrence: None)
  Receive Date: 20110422
  Receipt Date: 20110419
  Transmission Date: 20111010
  Serious: Yes (Other)
  Sender: FDA-Public Use
  Company Number: US-ELI_LILLY_AND_COMPANY-US201104005888

PATIENT
  Age: 60 Year
  Sex: Male

DRUGS (3)
  1. LANTUS [Concomitant]
     Dosage: UNK
  2. PREDNISONE [Concomitant]
  3. HUMALOG [Suspect]
     Indication: DIABETES MELLITUS

REACTIONS (1)
  - HYPOGLYCAEMIC UNCONSCIOUSNESS [None]
